FAERS Safety Report 24275093 (Version 1)
Quarter: 2024Q3

REPORT INFORMATION
  Report Type: Spontaneous
  Country: US (occurrence: US)
  Receive Date: 20240902
  Receipt Date: 20240902
  Transmission Date: 20241017
  Serious: Yes (Hospitalization)
  Sender: JOHNSON AND JOHNSON
  Company Number: US-JNJFOC-20240869379

PATIENT
  Age: 59 Year
  Sex: Female

DRUGS (36)
  1. OPSUMIT [Suspect]
     Active Substance: MACITENTAN
     Indication: Product used for unknown indication
     Route: 048
  2. REMODULIN [Suspect]
     Active Substance: TREPROSTINIL
     Indication: Pulmonary arterial hypertension
     Dosage: SELF-FILL CASSETTE WITH 3 ML; RATE OF 35 MCL/HOUR
     Route: 058
     Dates: start: 2024
  3. REMODULIN [Suspect]
     Active Substance: TREPROSTINIL
     Dosage: SELF-FILL CASSETTE WITH 3ML, RATE OF 37 MCL/HOUR
     Route: 058
     Dates: start: 20240408
  4. REMODULIN [Suspect]
     Active Substance: TREPROSTINIL
     Route: 042
     Dates: start: 2024
  5. REMODULIN [Suspect]
     Active Substance: TREPROSTINIL
     Route: 042
     Dates: start: 2024
  6. REMODULIN [Suspect]
     Active Substance: TREPROSTINIL
     Dosage: SELF-FILL CASSETTE WITH 1.7 ML; RATE OF 17 MCL/HR
     Route: 058
     Dates: start: 2024
  7. SILDENAFIL [Suspect]
     Active Substance: SILDENAFIL
     Indication: Product used for unknown indication
     Route: 065
  8. ALBUTEROL\IPRATROPIUM [Concomitant]
     Active Substance: ALBUTEROL\IPRATROPIUM
  9. METFORMIN HYDROCHLORIDE [Concomitant]
     Active Substance: METFORMIN HYDROCHLORIDE
  10. MIRTAZAPINE [Concomitant]
     Active Substance: MIRTAZAPINE
  11. TYLENOL [Concomitant]
     Active Substance: ACETAMINOPHEN
  12. BROVANA [Concomitant]
     Active Substance: ARFORMOTEROL TARTRATE
  13. PULMICORT TURBUHALER [Concomitant]
     Active Substance: BUDESONIDE
  14. TRAZODONE HCL [Concomitant]
     Active Substance: TRAZODONE HYDROCHLORIDE
  15. BUMETANIDE [Concomitant]
     Active Substance: BUMETANIDE
  16. KETAMINE HYDROCHLORIDE [Concomitant]
     Active Substance: KETAMINE HYDROCHLORIDE
  17. LECITHIN [Concomitant]
     Active Substance: LECITHIN
  18. ALBUTEROL SULFATE [Concomitant]
     Active Substance: ALBUTEROL SULFATE
  19. LITHIUM CARBONATE [Concomitant]
     Active Substance: LITHIUM CARBONATE
  20. OXCARBAZEPINE [Concomitant]
     Active Substance: OXCARBAZEPINE
  21. KAOPECTATE [ATTAPULGITE] [Concomitant]
  22. POTASSIUM CHLORIDE [Concomitant]
     Active Substance: POTASSIUM CHLORIDE
  23. MAGNESIUM HYDROXIDE [Concomitant]
     Active Substance: MAGNESIUM HYDROXIDE
  24. METOPROLOL SUCCINATE [Concomitant]
     Active Substance: METOPROLOL SUCCINATE
  25. CLONIDINE [Concomitant]
     Active Substance: CLONIDINE
  26. KETOPROFEN [Concomitant]
     Active Substance: KETOPROFEN
  27. GLYBURIDE [Concomitant]
     Active Substance: GLYBURIDE
  28. SIMVASTATIN [Concomitant]
     Active Substance: SIMVASTATIN
  29. TIOTROPIUM BROMIDE [Concomitant]
     Active Substance: TIOTROPIUM BROMIDE
  30. OXYGEN [Concomitant]
     Active Substance: OXYGEN
  31. LIDOCAINE HYDROCHLORIDE [Concomitant]
     Active Substance: LIDOCAINE HYDROCHLORIDE
  32. ARIPIPRAZOLE [Concomitant]
     Active Substance: ARIPIPRAZOLE
  33. AMITRIPTYLINE [Concomitant]
     Active Substance: AMITRIPTYLINE
  34. GABAPENTIN [Concomitant]
     Active Substance: GABAPENTIN
  35. POLOXAMER [Concomitant]
     Active Substance: POLOXAMER
  36. MINERALS\VITAMINS [Concomitant]
     Active Substance: MINERALS\VITAMINS

REACTIONS (6)
  - Dyspnoea [Unknown]
  - Fatigue [Unknown]
  - Oedema peripheral [Unknown]
  - Tremor [Unknown]
  - Hypotension [Unknown]
  - Oxygen saturation decreased [Unknown]

NARRATIVE: CASE EVENT DATE: 20240101
